FAERS Safety Report 10257980 (Version 1)
Quarter: 2014Q2

REPORT INFORMATION
  Report Type: Spontaneous
  Country: US (occurrence: US)
  Receive Date: 20140625
  Receipt Date: 20140625
  Transmission Date: 20141212
  Serious: Yes (Hospitalization, Other)
  Sender: FDA-Public Use
  Company Number: US-ABBVIE-14P-163-1249376-00

PATIENT
  Age: 63 Year
  Sex: Male
  Weight: 70.37 kg

DRUGS (10)
  1. DEPAKOTE ER [Suspect]
     Indication: BIPOLAR DISORDER
     Dates: start: 201405
  2. DEPAKOTE ER [Suspect]
     Indication: CONVULSION
  3. DIVALPROEX SODIUM ER [Suspect]
     Indication: PRODUCT USED FOR UNKNOWN INDICATION
     Dates: start: 201312
  4. NEXIUM [Suspect]
     Indication: PROPHYLAXIS
     Dates: start: 2013
  5. ATIVAN [Suspect]
     Indication: AGITATION
  6. LOPRESSOR [Concomitant]
     Indication: AORTIC VALVE REPLACEMENT
  7. LASIX [Concomitant]
     Indication: CARDIAC FAILURE CONGESTIVE
  8. VITAMIN B1 [Concomitant]
     Indication: PRODUCT USED FOR UNKNOWN INDICATION
  9. VITAMIN B6 [Concomitant]
     Indication: PRODUCT USED FOR UNKNOWN INDICATION
  10. IRON [Concomitant]
     Indication: ANAEMIA

REACTIONS (10)
  - Upper limb fracture [Recovering/Resolving]
  - Generalised tonic-clonic seizure [Recovered/Resolved]
  - Hip fracture [Recovering/Resolving]
  - Delusional disorder, unspecified type [Recovered/Resolved]
  - Convulsion [Recovered/Resolved]
  - Visual impairment [Not Recovered/Not Resolved]
  - Generalised tonic-clonic seizure [Recovered/Resolved]
  - Agitation [Recovered/Resolved]
  - Osteoporosis [Not Recovered/Not Resolved]
  - Anticonvulsant drug level abnormal [Not Recovered/Not Resolved]
